FAERS Safety Report 10170612 (Version 2)
Quarter: 2014Q2

REPORT INFORMATION
  Report Type: Spontaneous
  Country: NZ (occurrence: NZ)
  Receive Date: 20140514
  Receipt Date: 20140603
  Transmission Date: 20141212
  Serious: Yes (Hospitalization)
  Sender: FDA-Public Use
  Company Number: NZ-AMGEN-NZLSP2014034759

PATIENT
  Age: 38 Year
  Sex: Male

DRUGS (4)
  1. NEULASTIM [Suspect]
     Indication: PROPHYLAXIS
     Dosage: (6 MG,1 IN 6 D)
     Route: 058
     Dates: start: 20140429
  2. BLEOMYCIN                          /00183902/ [Concomitant]
     Indication: TESTIS CANCER
     Dosage: UNK
  3. ETOPOSIDE [Concomitant]
     Indication: TESTIS CANCER
     Dosage: UNK
  4. CISPLATIN [Concomitant]
     Indication: TESTIS CANCER
     Dosage: UNK

REACTIONS (1)
  - Febrile neutropenia [Recovered/Resolved]
